FAERS Safety Report 8228639-6 (Version None)
Quarter: 2012Q1

REPORT INFORMATION
  Report Type: 
  Country: None (occurrence: None)
  Receive Date: 20120322
  Receipt Date: 20110217
  Transmission Date: 20120608
  Serious: No
  Sender: FDA-Public Use
  Company Number: US-BRISTOL-MYERS SQUIBB COMPANY-15557432

PATIENT
  Age: 73 Year
  Sex: Male
  Weight: 75 kg

DRUGS (2)
  1. IRINOTECAN HCL [Concomitant]
  2. ERBITUX [Suspect]

REACTIONS (3)
  - ACNE [None]
  - STOMATITIS [None]
  - RASH [None]
